FAERS Safety Report 7713025-5 (Version None)
Quarter: 2011Q3

REPORT INFORMATION
  Report Type: 
  Country: None (occurrence: None)
  Receive Date: 20110826
  Receipt Date: 20110819
  Transmission Date: 20111222
  Serious: Yes (Other)
  Sender: FDA-Public Use
  Company Number: DE-TEVA-290042GER

PATIENT
  Sex: Female

DRUGS (1)
  1. FINASTERIDE [Suspect]
     Dosage: THE SUSPECT MEDICATION WAS TAKEN BY THE FATHER
     Route: 065
     Dates: start: 20080101

REACTIONS (1)
  - MOLAR ABORTION [None]
